FAERS Safety Report 10543032 (Version 1)
Quarter: 2014Q4

REPORT INFORMATION
  Report Type: Spontaneous
  Country: US (occurrence: None)
  Receive Date: 20141024
  Receipt Date: 20141024
  Transmission Date: 20150529
  Serious: Yes (Life-Threatening, Disabling, Other)
  Sender: FDA-Public Use
  Company Number: None

PATIENT
  Age: 33 Year
  Sex: Female
  Weight: 72.58 kg

DRUGS (1)
  1. HYDROCORTISONE. [Suspect]
     Active Substance: HYDROCORTISONE
     Indication: ADDISON^S DISEASE
     Dosage: 3 PILLS
     Route: 048
     Dates: start: 20140801, end: 20140901

REACTIONS (2)
  - Adrenocortical insufficiency acute [None]
  - Product substitution issue [None]

NARRATIVE: CASE EVENT DATE: 20140901
